FAERS Safety Report 21049187 (Version 1)
Quarter: 2022Q3

REPORT INFORMATION
  Report Type: Spontaneous
  Country: US (occurrence: None)
  Receive Date: 20220706
  Receipt Date: 20220706
  Transmission Date: 20221027
  Serious: Yes (Other)
  Sender: FDA-Public Use
  Company Number: None

PATIENT
  Age: 38 Year
  Sex: Female
  Weight: 90.9 kg

DRUGS (2)
  1. PAXLOVID [Suspect]
     Active Substance: NIRMATRELVIR\RITONAVIR
     Indication: COVID-19
     Dosage: OTHER QUANTITY : 3 TABLET(S);?FREQUENCY : TWICE A DAY;?
     Route: 048
     Dates: start: 20220624, end: 20220629
  2. DEVICE [Concomitant]
     Active Substance: DEVICE

REACTIONS (14)
  - Diarrhoea [None]
  - Dysgeusia [None]
  - Headache [None]
  - Palpitations [None]
  - Nasal congestion [None]
  - Neck pain [None]
  - Malaise [None]
  - Fatigue [None]
  - Hyperhidrosis [None]
  - Ocular hyperaemia [None]
  - Lacrimation increased [None]
  - Rhinorrhoea [None]
  - Anosmia [None]
  - COVID-19 [None]

NARRATIVE: CASE EVENT DATE: 20220704
